FAERS Safety Report 8843782 (Version 2)
Quarter: 2012Q4

REPORT INFORMATION
  Report Type: 
  Country: DE (occurrence: DE)
  Receive Date: 20121016
  Receipt Date: 20121222
  Transmission Date: 20130627
  Serious: Yes (Hospitalization)
  Sender: FDA-Public Use
  Company Number: DE-B.I. PHARMACEUTICALS,INC./RIDGEFIELD-2012-DE-02404DE

PATIENT
  Sex: Male

DRUGS (2)
  1. SIFROL [Suspect]
     Indication: PARKINSONISM
  2. RAMIPRIL [Concomitant]

REACTIONS (5)
  - Cardiac disorder [Unknown]
  - Presyncope [Unknown]
  - Polyneuropathy [Unknown]
  - Hypertension [Unknown]
  - Tinea pedis [Unknown]
